FAERS Safety Report 14829630 (Version 4)
Quarter: 2019Q3

REPORT INFORMATION
  Report Type: Spontaneous
  Country: US (occurrence: US)
  Receive Date: 20180430
  Receipt Date: 20190905
  Transmission Date: 20191004
  Serious: Yes (Hospitalization, Other)
  Sender: FDA-Public Use
  Company Number: US-ASTRAZENECA-2018SE50625

PATIENT
  Age: 61 Year
  Sex: Female
  Weight: 78.9 kg

DRUGS (100)
  1. PRILOSEC [Suspect]
     Active Substance: OMEPRAZOLE MAGNESIUM
     Route: 048
  2. PRILOSEC OTC [Suspect]
     Active Substance: OMEPRAZOLE MAGNESIUM
     Route: 048
  3. PROTONIX [Suspect]
     Active Substance: PANTOPRAZOLE SODIUM
     Route: 048
  4. ERGOCALCIFEROL. [Concomitant]
     Active Substance: ERGOCALCIFEROL
  5. NASONEX [Concomitant]
     Active Substance: MOMETASONE FUROATE
  6. PROMETHAZINE [Concomitant]
     Active Substance: PROMETHAZINE HYDROCHLORIDE
  7. RANITIDINE. [Concomitant]
     Active Substance: RANITIDINE
  8. CRESTOR [Concomitant]
     Active Substance: ROSUVASTATIN CALCIUM
  9. TOPIRAMATE. [Concomitant]
     Active Substance: TOPIRAMATE
  10. CEPHALEXIN. [Concomitant]
     Active Substance: CEPHALEXIN
  11. ZOLPIDEM [Concomitant]
     Active Substance: ZOLPIDEM TARTRATE
  12. ZONISAMIDE. [Concomitant]
     Active Substance: ZONISAMIDE
  13. BENADRYL [Concomitant]
     Active Substance: DIPHENHYDRAMINE HYDROCHLORIDE
  14. AFRIN [Concomitant]
     Active Substance: OXYMETAZOLINE
  15. NIZATIDINE. [Concomitant]
     Active Substance: NIZATIDINE
  16. NEXIUM [Suspect]
     Active Substance: ESOMEPRAZOLE MAGNESIUM
     Dosage: GENERIC
     Route: 065
     Dates: start: 2005, end: 2016
  17. PRILOSEC [Suspect]
     Active Substance: OMEPRAZOLE MAGNESIUM
     Dosage: GENERIC
     Route: 065
     Dates: start: 2005, end: 2014
  18. FERROUS SULFATE. [Concomitant]
     Active Substance: FERROUS SULFATE
  19. GLYCOPYRROLATE. [Concomitant]
     Active Substance: GLYCOPYRROLATE
  20. REGLAN [Concomitant]
     Active Substance: METOCLOPRAMIDE HYDROCHLORIDE
  21. CARVEDILOL. [Concomitant]
     Active Substance: CARVEDILOL
  22. TRAMADOL. [Concomitant]
     Active Substance: TRAMADOL
  23. FUROSEMIDE. [Concomitant]
     Active Substance: FUROSEMIDE
  24. SEROQUEL [Concomitant]
     Active Substance: QUETIAPINE FUMARATE
  25. TOPIRAMATE. [Concomitant]
     Active Substance: TOPIRAMATE
  26. CLONAZEPAM. [Concomitant]
     Active Substance: CLONAZEPAM
  27. BENAZEPRIL [Concomitant]
     Active Substance: BENAZEPRIL HYDROCHLORIDE
  28. PENICILLINE [Concomitant]
     Active Substance: PENICILLIN G
  29. ERYTHROMYCIN. [Concomitant]
     Active Substance: ERYTHROMYCIN
  30. ABILIFY [Concomitant]
     Active Substance: ARIPIPRAZOLE
  31. DALIRESP [Concomitant]
     Active Substance: ROFLUMILAST
  32. OXYCODONE-ACETAMINOPHEN [Concomitant]
     Active Substance: ACETAMINOPHEN\OXYCODONE HYDROCHLORIDE
  33. LYRICA [Concomitant]
     Active Substance: PREGABALIN
  34. PREDNISONE. [Concomitant]
     Active Substance: PREDNISONE
  35. RISPERIDONE. [Concomitant]
     Active Substance: RISPERIDONE
  36. ONDANSETRON [Concomitant]
     Active Substance: ONDANSETRON
  37. PROAIR HFA [Concomitant]
     Active Substance: ALBUTEROL SULFATE
  38. POLYETHYLENE GLYCOL [Concomitant]
     Active Substance: POLYETHYLENE GLYCOLS
  39. ASPIRIN. [Concomitant]
     Active Substance: ASPIRIN
  40. AMBIEN [Concomitant]
     Active Substance: ZOLPIDEM TARTRATE
  41. MUCINEX [Concomitant]
     Active Substance: GUAIFENESIN
  42. AZELASTINE. [Concomitant]
     Active Substance: AZELASTINE HYDROCHLORIDE
  43. TRILIPIX [Concomitant]
     Active Substance: FENOFIBRIC ACID
  44. CEFUROXIME. [Concomitant]
     Active Substance: CEFUROXIME
  45. DEXAMETHASONE. [Concomitant]
     Active Substance: DEXAMETHASONE
  46. BENZONATATE. [Concomitant]
     Active Substance: BENZONATATE
  47. ZANTAC [Concomitant]
     Active Substance: RANITIDINE HYDROCHLORIDE
  48. NEXIUM [Suspect]
     Active Substance: ESOMEPRAZOLE MAGNESIUM
     Route: 048
     Dates: start: 20130307
  49. NEXIUM [Suspect]
     Active Substance: ESOMEPRAZOLE MAGNESIUM
     Route: 048
     Dates: start: 2005, end: 2016
  50. DEXILANT [Suspect]
     Active Substance: DEXLANSOPRAZOLE
     Route: 048
     Dates: start: 20150108
  51. PREVACID 24 HR [Suspect]
     Active Substance: LANSOPRAZOLE
     Route: 048
  52. CYCLOBENZAPRINE. [Concomitant]
     Active Substance: CYCLOBENZAPRINE
  53. FUROSEMIDE. [Concomitant]
     Active Substance: FUROSEMIDE
  54. CYCLOBENZAPRINE. [Concomitant]
     Active Substance: CYCLOBENZAPRINE
  55. GABAPENTIN. [Concomitant]
     Active Substance: GABAPENTIN
  56. OXYCODONE [Concomitant]
     Active Substance: OXYCODONE
  57. RANITIDINE. [Concomitant]
     Active Substance: RANITIDINE
  58. ADVAIR HFA [Concomitant]
     Active Substance: FLUTICASONE PROPIONATE\SALMETEROL XINAFOATE
  59. NEXIUM [Suspect]
     Active Substance: ESOMEPRAZOLE MAGNESIUM
     Route: 048
  60. OMEGA-3 ACIDS [Concomitant]
     Active Substance: OMEGA-3 FATTY ACIDS
  61. LEVSIN [Concomitant]
     Active Substance: HYOSCYAMINE SULFATE
  62. GABAPENTIN. [Concomitant]
     Active Substance: GABAPENTIN
  63. PREDNISONE. [Concomitant]
     Active Substance: PREDNISONE
  64. MAXALT [Concomitant]
     Active Substance: RIZATRIPTAN BENZOATE
  65. TRIHEXYPHENIDYL [Concomitant]
     Active Substance: TRIHEXYPHENIDYL
  66. IPRATROPIUM [Concomitant]
     Active Substance: IPRATROPIUM
  67. CEFDINIR. [Concomitant]
     Active Substance: CEFDINIR
  68. LACTOSE [Concomitant]
     Active Substance: LACTOSE
  69. PRILOSEC [Suspect]
     Active Substance: OMEPRAZOLE MAGNESIUM
     Route: 048
     Dates: start: 2005, end: 2014
  70. DOMPERIDONE [Concomitant]
     Active Substance: DOMPERIDONE
  71. HYDRALAZINE [Concomitant]
     Active Substance: HYDRALAZINE HYDROCHLORIDE
  72. LATUDA [Concomitant]
     Active Substance: LURASIDONE HYDROCHLORIDE
  73. DIAZEPAM. [Concomitant]
     Active Substance: DIAZEPAM
  74. POTASSIUM [Concomitant]
     Active Substance: POTASSIUM
  75. METOCLOPRAMIDE. [Concomitant]
     Active Substance: METOCLOPRAMIDE
  76. HYOMAX [Concomitant]
     Active Substance: HYOSCYAMINE SULFATE
  77. PRIMIDONE. [Concomitant]
     Active Substance: PRIMIDONE
  78. FERROUS SULFATE. [Concomitant]
     Active Substance: FERROUS SULFATE
  79. LORAZEPAM. [Concomitant]
     Active Substance: LORAZEPAM
  80. TREXIMET [Concomitant]
     Active Substance: NAPROXEN SODIUM\SUMATRIPTAN SUCCINATE
  81. NEOMYCIN SULFATE. [Concomitant]
     Active Substance: NEOMYCIN SULFATE
  82. SPIRIVA [Concomitant]
     Active Substance: TIOTROPIUM BROMIDE MONOHYDRATE
  83. SENNA [Concomitant]
     Active Substance: SENNA LEAF\SENNOSIDES\SENNOSIDES A AND B
  84. TUMS [Concomitant]
     Active Substance: CALCIUM CARBONATE
  85. NEXIUM 24HR [Suspect]
     Active Substance: ESOMEPRAZOLE MAGNESIUM
     Route: 048
  86. PREVACID [Suspect]
     Active Substance: LANSOPRAZOLE
     Route: 048
  87. CLONAZEPAM. [Concomitant]
     Active Substance: CLONAZEPAM
  88. DICYCLOMINE [Concomitant]
     Active Substance: DICYCLOMINE HYDROCHLORIDE
  89. FOLBIC [Concomitant]
     Active Substance: CYANOCOBALAMIN\FOLIC ACID\PYRIDOXINE
  90. FLURAZEPAM [Concomitant]
     Active Substance: FLURAZEPAM HYDROCHLORIDE
  91. CYMBALTA [Concomitant]
     Active Substance: DULOXETINE HYDROCHLORIDE
  92. DIVALPROEX [Concomitant]
     Active Substance: DIVALPROEX SODIUM
  93. ZOLPIDEM [Concomitant]
     Active Substance: ZOLPIDEM TARTRATE
  94. DOXYCYCLINE. [Concomitant]
     Active Substance: DOXYCYCLINE
  95. TUSSIONEX PENNKINETIC [Concomitant]
     Active Substance: CHLORPHENIRAMINE\HYDROCODONE
  96. CLOBETASOL [Concomitant]
     Active Substance: CLOBETASOL
  97. DULOXETINE. [Concomitant]
     Active Substance: DULOXETINE
  98. PRAVASTATIN. [Concomitant]
     Active Substance: PRAVASTATIN
  99. LOVAZA [Concomitant]
     Active Substance: OMEGA-3-ACID ETHYL ESTERS
  100. BUPROPION. [Concomitant]
     Active Substance: BUPROPION

REACTIONS (7)
  - Renal failure [Unknown]
  - Renal injury [Unknown]
  - Tubulointerstitial nephritis [Unknown]
  - Chronic kidney disease [Not Recovered/Not Resolved]
  - End stage renal disease [Unknown]
  - Acute kidney injury [Unknown]
  - Rebound acid hypersecretion [Unknown]

NARRATIVE: CASE EVENT DATE: 2011
